FAERS Safety Report 10350939 (Version 3)
Quarter: 2015Q1

REPORT INFORMATION
  Report Type: Spontaneous
  Country: JP (occurrence: JP)
  Receive Date: 20140730
  Receipt Date: 20150204
  Transmission Date: 20150720
  Serious: Yes (Hospitalization)
  Sender: FDA-Public Use
  Company Number: JP-PFIZER INC-2014113389

PATIENT
  Age: 60 Year
  Sex: Female
  Weight: 59.6 kg

DRUGS (4)
  1. SUTENT [Suspect]
     Active Substance: SUNITINIB MALATE
     Indication: GASTROINTESTINAL STROMAL TUMOUR
     Dosage: 50 MG, 1X/DAY
     Route: 048
     Dates: start: 20131212, end: 20140408
  2. PARIET [Concomitant]
     Active Substance: RABEPRAZOLE SODIUM
     Indication: ABDOMINAL PAIN UPPER
     Dosage: 10 MG, 1X/DAY
     Route: 048
     Dates: start: 20121226
  3. FUROSEMIDE. [Concomitant]
     Active Substance: FUROSEMIDE
     Indication: OEDEMA
     Dosage: 20 MG, 1X/DAY
     Route: 048
     Dates: start: 20121126
  4. ANOPROLIN [Concomitant]
     Active Substance: ALLOPURINOL
     Indication: HYPERURICAEMIA
     Dosage: 100 MG, 1X/DAY
     Route: 048
     Dates: start: 20140109

REACTIONS (3)
  - Dizziness [Recovering/Resolving]
  - Hyperammonaemia [Recovered/Resolved]
  - Malaise [Recovering/Resolving]

NARRATIVE: CASE EVENT DATE: 20140415
